FAERS Safety Report 11362977 (Version 1)
Quarter: 2015Q3

REPORT INFORMATION
  Report Type: Spontaneous
  Country: DE (occurrence: None)
  Receive Date: 20150807
  Receipt Date: 20150807
  Transmission Date: 20151125
  Serious: Yes (Death)
  Sender: FDA-Public Use
  Company Number: DE-AGG-07-2015-0615

PATIENT
  Age: 56 Year
  Sex: Male
  Weight: 82 kg

DRUGS (10)
  1. TIROFIBAN HCL [Suspect]
     Active Substance: TIROFIBAN HYDROCHLORIDE
     Indication: ANTIPLATELET THERAPY
     Route: 042
     Dates: start: 20061213, end: 20061213
  2. TIROFIBAN HCL [Suspect]
     Active Substance: TIROFIBAN HYDROCHLORIDE
     Indication: ANTIPLATELET THERAPY
     Route: 042
     Dates: start: 20061213
  3. BETA BLOCKER [Concomitant]
     Active Substance: UNSPECIFIED INGREDIENT
  4. TIROFIBAN HCL [Suspect]
     Active Substance: TIROFIBAN HYDROCHLORIDE
     Indication: ANTIPLATELET THERAPY
     Route: 042
     Dates: start: 20061213, end: 20061213
  5. TIROFIBAN HCL [Suspect]
     Active Substance: TIROFIBAN HYDROCHLORIDE
     Indication: ANTIPLATELET THERAPY
     Route: 042
     Dates: start: 20061213
  6. STATIN [Concomitant]
     Active Substance: UNSPECIFIED INGREDIENT
  7. ASA [Concomitant]
     Active Substance: ASPIRIN
  8. ANTI COAGULANT [Concomitant]
  9. ACE INHIBITOR [Concomitant]
     Active Substance: UNSPECIFIED INGREDIENT
  10. CLOPIDOGREL [Concomitant]
     Active Substance: CLOPIDOGREL BISULFATE

REACTIONS (3)
  - Vascular stent thrombosis [None]
  - Sudden cardiac death [None]
  - Myocardial infarction [None]

NARRATIVE: CASE EVENT DATE: 20061227
